FAERS Safety Report 6679059-7 (Version None)
Quarter: 2010Q2

REPORT INFORMATION
  Report Type: 
  Country: None (occurrence: None)
  Receive Date: 20100413
  Receipt Date: 20100401
  Transmission Date: 20101027
  Serious: Yes (Disabling, Other)
  Sender: FDA-Public Use
  Company Number: PHHY2010JP20686

PATIENT
  Age: 73 Year
  Sex: Male

DRUGS (3)
  1. DIOVAN HCT [Suspect]
     Indication: HYPERTENSION
     Dosage: 1 DF, QD
     Route: 048
     Dates: start: 20091201
  2. DIOVAN [Concomitant]
     Indication: HYPERTENSION
     Dosage: 1 DF, UNK
     Route: 048
     Dates: start: 20091001
  3. NORVASC [Concomitant]
     Dosage: 1 DF, UNK
     Route: 048
     Dates: start: 20091201

REACTIONS (3)
  - EXTRASYSTOLES [None]
  - MALAISE [None]
  - VENTRICULAR EXTRASYSTOLES [None]
